FAERS Safety Report 19043926 (Version 1)
Quarter: 2021Q1

REPORT INFORMATION
  Report Type: Spontaneous
  Country: IT (occurrence: IT)
  Receive Date: 20210322
  Receipt Date: 20210322
  Transmission Date: 20210420
  Serious: Yes (Hospitalization)
  Sender: FDA-Public Use
  Company Number: IT-PFIZER INC-2021272386

PATIENT
  Age: 83 Year
  Sex: Female

DRUGS (7)
  1. LANOXIN [Interacting]
     Active Substance: DIGOXIN
     Indication: CARDIAC FAILURE
     Dosage: 0.06 MG, 1X/DAY
     Route: 048
     Dates: start: 20210223, end: 20210305
  2. NORVASC [Concomitant]
     Active Substance: AMLODIPINE BESYLATE
  3. CORDARONE [Interacting]
     Active Substance: AMIODARONE HYDROCHLORIDE
     Indication: ATRIAL FIBRILLATION
     Dosage: 200 MG, 1X/DAY
     Route: 048
     Dates: start: 20210130, end: 20210305
  4. LUVION [POTASSIUM CANRENOATE] [Concomitant]
     Active Substance: CANRENOATE POTASSIUM
  5. TRIATEC [RAMIPRIL] [Concomitant]
     Active Substance: RAMIPRIL
  6. PREFOLIC [Concomitant]
     Active Substance: LEUCOVORIN CALCIUM
  7. TORVAST [Suspect]
     Active Substance: ATORVASTATIN
     Indication: BLOOD CHOLESTEROL
     Dosage: 20 MG, 1X/DAY
     Route: 048
     Dates: start: 20210127, end: 20210305

REACTIONS (2)
  - Toxicity to various agents [Recovering/Resolving]
  - Drug interaction [Recovering/Resolving]

NARRATIVE: CASE EVENT DATE: 20210305
